FAERS Safety Report 8868807 (Version 3)
Quarter: 2012Q4

REPORT INFORMATION
  Report Type: 
  Country: US (occurrence: US)
  Receive Date: 20121024
  Receipt Date: 20121127
  Transmission Date: 20130627
  Serious: Yes (Hospitalization)
  Sender: FDA-Public Use
  Company Number: US-SHIRE-ALL1-2012-04054

PATIENT
  Age: 14 Year
  Sex: Male
  Weight: 89.9 kg

DRUGS (5)
  1. GUANFACINE HYDROCHLORIDE [Suspect]
     Indication: ATTENTION DEFICIT/HYPERACTIVITY DISORDER
     Dosage: 7 mg, 1x/day:qd
     Route: 048
     Dates: start: 20120629, end: 201208
  2. GUANFACINE HYDROCHLORIDE [Suspect]
     Dosage: UNK UNK, Unknown
     Route: 048
     Dates: start: 20120510, end: 2012
  3. GUANFACINE HYDROCHLORIDE [Suspect]
     Dosage: 1 mg, 1x/day:qd
     Route: 048
     Dates: start: 20120821, end: 20120824
  4. VITAMIN D /00107901/ [Concomitant]
     Indication: VITAMIN SUPPLEMENTATION
     Dosage: UNK, Unknown
     Route: 065
     Dates: start: 20120103
  5. MULTIVITAMIN                       /07504101/ [Concomitant]
     Indication: VITAMIN SUPPLEMENTATION
     Dosage: UNK, Unknown
     Route: 065
     Dates: start: 20120103

REACTIONS (2)
  - Withdrawal hypertension [Recovered/Resolved]
  - Vomiting [Recovered/Resolved]
